FAERS Safety Report 8499336 (Version 2)
Quarter: 2013Q1

REPORT INFORMATION
  Report Type: Spontaneous
  Country: ES (occurrence: ES)
  Receive Date: 20120409
  Receipt Date: 20130328
  Transmission Date: 20140127
  Serious: Yes (Other)
  Sender: FDA-Public Use
  Company Number: ES-JNJFOC-20120401506

PATIENT
  Age: 54 Year
  Sex: Female
  Weight: 70.3 kg

DRUGS (13)
  1. FORTASEC [Suspect]
     Indication: CONSTIPATION
     Route: 065
     Dates: start: 2010
  2. RISPERIDONE [Suspect]
     Indication: PRODUCT USED FOR UNKNOWN INDICATION
     Route: 065
     Dates: start: 20110331, end: 20110609
  3. RISPERIDONE [Suspect]
     Indication: PRODUCT USED FOR UNKNOWN INDICATION
     Route: 065
     Dates: start: 20110610, end: 201107
  4. RISPERIDONE [Suspect]
     Indication: PRODUCT USED FOR UNKNOWN INDICATION
     Route: 065
     Dates: start: 20110323, end: 20110330
  5. RISPERIDONE [Suspect]
     Indication: PRODUCT USED FOR UNKNOWN INDICATION
     Route: 065
     Dates: start: 201107
  6. ITRACONAZOLE [Interacting]
     Indication: VULVOVAGINAL CANDIDIASIS
     Route: 065
     Dates: start: 201102, end: 20110830
  7. SERTRALINE [Interacting]
     Indication: OBSESSIVE-COMPULSIVE DISORDER
     Route: 048
     Dates: start: 201101
  8. EVISTA [Interacting]
     Indication: OSTEOPOROSIS
     Route: 048
     Dates: start: 201008
  9. NATECAL [Interacting]
     Indication: OSTEOPOROSIS
     Route: 048
     Dates: start: 201007
  10. KETOISDIN [Interacting]
     Indication: VULVOVAGINAL CANDIDIASIS
     Route: 067
     Dates: start: 20110326, end: 20110521
  11. ABILIFY [Concomitant]
     Indication: OBSESSIVE-COMPULSIVE DISORDER
     Route: 048
     Dates: start: 20110609, end: 201107
  12. ABILIFY [Concomitant]
     Indication: OBSESSIVE-COMPULSIVE DISORDER
     Route: 048
     Dates: start: 20110323, end: 20110609
  13. ANAFRANIL [Concomitant]
     Indication: OBSESSIVE-COMPULSIVE DISORDER
     Route: 048
     Dates: start: 201101, end: 20110625

REACTIONS (2)
  - Abnormal weight gain [Not Recovered/Not Resolved]
  - Drug interaction [Not Recovered/Not Resolved]
